FAERS Safety Report 18340532 (Version 1)
Quarter: 2020Q4

REPORT INFORMATION
  Report Type: Spontaneous
  Country: US (occurrence: US)
  Receive Date: 20201002
  Receipt Date: 20201002
  Transmission Date: 20210113
  Serious: Yes (Death)
  Sender: FDA-Public Use
  Company Number: US-FRESENIUS MEDICAL CARE RENAL THERAPIES GROUP-FMC-2010-001159

PATIENT
  Age: 49 Year
  Sex: Male
  Weight: 155 kg

DRUGS (9)
  1. DELFLEX WITH DEXTROSE 2.5% LOW MAGNESIUM LOW CALCIUM [Suspect]
     Active Substance: CALCIUM CHLORIDE\DEXTROSE\MAGNESIUM CHLORIDE\SODIUM CHLORIDE\SODIUM LACTATE
     Indication: END STAGE RENAL DISEASE
     Dosage: 5 FILLS. 2300ML. 1HR 40 MINS. 500 DAY DWELL SINCE 23APR2019
     Route: 033
     Dates: start: 20190423
  2. CLONIDINE. [Concomitant]
     Active Substance: CLONIDINE
  3. ROSUVASTATIN. [Concomitant]
     Active Substance: ROSUVASTATIN
  4. ONDANSETRON HCL [Concomitant]
     Active Substance: ONDANSETRON HYDROCHLORIDE
  5. VITAMIN B COMPLEX [Concomitant]
     Active Substance: CYANOCOBALAMIN\DEXPANTHENOL\NIACINAMIDE\PYRIDOXINE HYDROCHLORIDE\RIBOFLAVIN 5^-PHOSPHATE SODIUM\THIAMINE HYDROCHLORIDE\VITAMIN B COMPLEX
  6. CALCIUM ACETATE. [Concomitant]
     Active Substance: CALCIUM ACETATE
  7. CARVEDILOL. [Concomitant]
     Active Substance: CARVEDILOL
  8. LISINOPRIL. [Concomitant]
     Active Substance: LISINOPRIL
  9. VITAMIN D3 [Concomitant]
     Active Substance: CHOLECALCIFEROL

REACTIONS (1)
  - Death [Fatal]
